FAERS Safety Report 14666140 (Version 2)
Quarter: 2018Q2

REPORT INFORMATION
  Report Type: Spontaneous
  Country: US (occurrence: US)
  Receive Date: 20180321
  Receipt Date: 20180411
  Transmission Date: 20180711
  Serious: Yes (Hospitalization, Other)
  Sender: FDA-Public Use
  Company Number: US-ELI_LILLY_AND_COMPANY-US201803008055

PATIENT
  Sex: Male

DRUGS (4)
  1. HUMATROPE [Suspect]
     Active Substance: SOMATROPIN
     Indication: GROWTH HORMONE DEFICIENCY
     Dosage: 1.8 MG, UNKNOWN
     Route: 058
     Dates: start: 201802
  2. HUMATROPE [Suspect]
     Active Substance: SOMATROPIN
     Dosage: 0.9 MG, UNKNOWN
     Route: 058
     Dates: start: 201803
  3. CORTEF [Concomitant]
     Active Substance: HYDROCORTISONE
     Indication: HORMONE REPLACEMENT THERAPY
     Dosage: UNK, UNKNOWN
     Route: 065
  4. DDAVP [Concomitant]
     Active Substance: DESMOPRESSIN ACETATE
     Indication: HORMONE REPLACEMENT THERAPY
     Dosage: UNK, UNKNOWN
     Route: 065

REACTIONS (3)
  - Hyponatraemia [Unknown]
  - Oedema [Unknown]
  - Hypernatraemia [Unknown]
